FAERS Safety Report 26138236 (Version 1)
Quarter: 2025Q4

REPORT INFORMATION
  Report Type: Spontaneous
  Country: US (occurrence: US)
  Receive Date: 20251210
  Receipt Date: 20251210
  Transmission Date: 20260117
  Serious: No
  Sender: ASTELLAS
  Company Number: US-ASTELLAS-2025-AER-067405

PATIENT
  Age: 71 Year
  Sex: Female

DRUGS (1)
  1. VEOZAH [Interacting]
     Active Substance: FEZOLINETANT
     Indication: Hot flush
     Route: 048
     Dates: start: 2025, end: 2025

REACTIONS (7)
  - Dizziness [Recovered/Resolved]
  - Feeling abnormal [Recovered/Resolved]
  - Abdominal discomfort [Recovered/Resolved]
  - Nausea [Recovered/Resolved]
  - Pallor [Recovered/Resolved]
  - Asthenia [Recovered/Resolved]
  - Drug interaction [Unknown]

NARRATIVE: CASE EVENT DATE: 20250101
